FAERS Safety Report 19602375 (Version 1)
Quarter: 2021Q3

REPORT INFORMATION
  Report Type: Spontaneous
  Country: FR (occurrence: FR)
  Receive Date: 20210724
  Receipt Date: 20210724
  Transmission Date: 20211014
  Serious: Yes (Other)
  Sender: FDA-Public Use
  Company Number: FR-AMGEN-FRASP2021109010

PATIENT
  Age: 42 Year
  Sex: Female

DRUGS (4)
  1. FILGRASTIM [Suspect]
     Active Substance: FILGRASTIM
     Indication: AUTOLOGOUS HAEMATOPOIETIC STEM CELL TRANSPLANT
     Route: 065
  2. CYCLOPHOSPHAMIDE. [Concomitant]
     Active Substance: CYCLOPHOSPHAMIDE
     Indication: BEHCET^S SYNDROME
     Route: 042
  3. MELPHALAN. [Concomitant]
     Active Substance: MELPHALAN
     Indication: BEHCET^S SYNDROME
  4. FILGRASTIM [Suspect]
     Active Substance: FILGRASTIM
     Indication: OFF LABEL USE

REACTIONS (8)
  - Behcet^s syndrome [Unknown]
  - Arthralgia [Unknown]
  - Pneumonia [Unknown]
  - Atrial fibrillation [Unknown]
  - Aphthous ulcer [Unknown]
  - Depression [Unknown]
  - Off label use [Unknown]
  - Deep vein thrombosis [Unknown]
